FAERS Safety Report 5366608-4 (Version None)
Quarter: 2007Q2

REPORT INFORMATION
  Report Type: 
  Country: None (occurrence: None)
  Receive Date: 20070622
  Receipt Date: 20070609
  Transmission Date: 20071010
  Serious: Yes (Hospitalization, Other)
  Sender: FDA-Public Use
  Company Number: US-PFIZER INC-2007031512

PATIENT
  Sex: Female
  Weight: 70.454 kg

DRUGS (19)
  1. CHANTIX [Suspect]
     Indication: SMOKING CESSATION THERAPY
     Dates: start: 20060101
  2. LYRICA [Suspect]
     Dosage: FREQ:FREQUENCY: TID
  3. BYETTA [Concomitant]
     Indication: DIABETES MELLITUS NON-INSULIN-DEPENDENT
  4. DIGOXIN [Concomitant]
     Indication: HYPERTENSION
  5. ACETYLSALICYLIC ACID SRT [Concomitant]
     Indication: PROPHYLAXIS
  6. MORPHINE SULFATE [Concomitant]
     Indication: PAIN
  7. CLONAZEPAM [Concomitant]
     Indication: PANIC ATTACK
  8. ACIPHEX [Concomitant]
     Indication: STOMACH DISCOMFORT
  9. MONTELUKAST SODIUM [Concomitant]
     Indication: CHRONIC OBSTRUCTIVE PULMONARY DISEASE
     Dosage: FREQ:AT BEDTIME
  10. ROZEREM [Concomitant]
     Indication: SLEEP DISORDER
     Dosage: FREQ:AT BEDTIME
  11. LORTAB [Concomitant]
     Dosage: FREQ:UP TO SIX DAILY, ONE EVERY 4-6 HOURS AS
  12. LIPITOR [Concomitant]
     Indication: BLOOD CHOLESTEROL ABNORMAL
     Dosage: FREQ:AT BEDTIME
  13. PAXIL [Concomitant]
     Indication: DEPRESSION
     Dosage: FREQ:ONCE DAILY
  14. ZYPREXA [Concomitant]
     Dosage: FREQ:AT BEDTIME
  15. XANAX [Concomitant]
  16. TOLTERODINE TARTRATE [Concomitant]
     Indication: BLADDER DISORDER
  17. ADVAIR DISKUS 100/50 [Concomitant]
     Indication: CHRONIC OBSTRUCTIVE PULMONARY DISEASE
     Dosage: FREQ:TWICE DAILY
  18. DUONEB [Concomitant]
     Indication: CHRONIC OBSTRUCTIVE PULMONARY DISEASE
  19. AMITIZA [Concomitant]
     Indication: BOWEL MOVEMENT IRREGULARITY

REACTIONS (5)
  - ABDOMINAL DISTENSION [None]
  - ABDOMINAL PAIN UPPER [None]
  - HEART RATE INCREASED [None]
  - OEDEMA PERIPHERAL [None]
  - OXYGEN SATURATION DECREASED [None]
